FAERS Safety Report 23855611 (Version 1)
Quarter: 2024Q2

REPORT INFORMATION
  Report Type: Other
  Country: CL (occurrence: None)
  Receive Date: 20240514
  Receipt Date: 20240514
  Transmission Date: 20240716
  Serious: Yes (Other)
  Sender: FDA-Public Use
  Company Number: CL-ROCHE-3560430

PATIENT
  Age: 38 Year
  Sex: Female
  Weight: 55 kg

DRUGS (4)
  1. OCRELIZUMAB [Suspect]
     Active Substance: OCRELIZUMAB
     Indication: Multiple sclerosis
     Route: 042
     Dates: start: 202101
  2. LEVOTHYROXINE SODIUM [Concomitant]
     Active Substance: LEVOTHYROXINE SODIUM
     Dosage: 1 TABLET DAILY
     Dates: start: 202305
  3. DEXCHLORPHENIRAMINE [Concomitant]
     Active Substance: DEXCHLORPHENIRAMINE
     Indication: Laryngitis
     Dosage: 2 TABLETS PER DAY
     Route: 048
     Dates: start: 20240505
  4. INFLUENZA VIRUS VACCINE [Concomitant]
     Active Substance: INFLUENZA VIRUS VACCINE
     Dosage: DOSE AND FREQUENCY WERE NOT REPORTED

REACTIONS (3)
  - Pneumonia [Unknown]
  - Fractured coccyx [Unknown]
  - Laryngitis [Unknown]

NARRATIVE: CASE EVENT DATE: 20231101
